FAERS Safety Report 18286842 (Version 1)
Quarter: 2020Q3

REPORT INFORMATION
  Report Type: Spontaneous
  Country: US (occurrence: US)
  Receive Date: 20200921
  Receipt Date: 20200921
  Transmission Date: 20201103
  Serious: No
  Sender: FDA-Public Use
  Company Number: US-ALVOGEN-2020-ALVOGEN-108356

PATIENT
  Age: 61 Year
  Sex: Female

DRUGS (1)
  1. GRALISE [Suspect]
     Active Substance: GABAPENTIN
     Indication: PAIN
     Dosage: 3 TABLETS BY MOUTH DAILY WITH DINNER
     Route: 048

REACTIONS (3)
  - Amnesia [Unknown]
  - Balance disorder [Unknown]
  - Dysarthria [Unknown]
